APPROVED DRUG PRODUCT: DOXYCYCLINE HYCLATE
Active Ingredient: DOXYCYCLINE HYCLATE
Strength: EQ 100MG BASE
Dosage Form/Route: CAPSULE;ORAL
Application: A207774 | Product #002 | TE Code: AB
Applicant: ZYDUS LIFESCIENCES LTD
Approved: May 31, 2018 | RLD: No | RS: No | Type: RX